FAERS Safety Report 20007310 (Version 2)
Quarter: 2021Q4

REPORT INFORMATION
  Report Type: Report from Study
  Country: US (occurrence: US)
  Receive Date: 20211028
  Receipt Date: 20211101
  Transmission Date: 20220304
  Serious: No
  Sender: FDA-Public Use
  Company Number: US-NOVARTISTESTPH-NVSC2021US245517

PATIENT
  Sex: Female

DRUGS (1)
  1. KESIMPTA [Suspect]
     Active Substance: OFATUMUMAB
     Indication: Relapsing multiple sclerosis
     Dosage: 20 MG
     Route: 058
     Dates: start: 20211016

REACTIONS (6)
  - Vomiting [Unknown]
  - Hyperhidrosis [Unknown]
  - Hot flush [Unknown]
  - Illness [Unknown]
  - Chills [Unknown]
  - Pyrexia [Unknown]
